FAERS Safety Report 4960937-1 (Version None)
Quarter: 2006Q1

REPORT INFORMATION
  Report Type: 
  Country: None (occurrence: None)
  Receive Date: 20060328
  Receipt Date: 20060313
  Transmission Date: 20060701
  Serious: Yes (Other)
  Sender: FDA-Public Use
  Company Number: 2006033603

PATIENT
  Age: 26 Year
  Sex: Male
  Weight: 69 kg

DRUGS (1)
  1. SULPERAZON (SULBACTAM, CEFOPERAZONE) [Suspect]
     Indication: CONGENITAL AURAL FISTULA
     Dosage: 1 GRAM (1 GRAM, 1 IN 1 D), INTRAVENOUS
     Route: 042
     Dates: start: 20060306, end: 20060306

REACTIONS (7)
  - CONJUNCTIVAL HYPERAEMIA [None]
  - DYSPNOEA [None]
  - FEELING ABNORMAL [None]
  - INFUSION RELATED REACTION [None]
  - LACRIMATION INCREASED [None]
  - PRURITUS GENERALISED [None]
  - SWELLING FACE [None]
